FAERS Safety Report 20045845 (Version 4)
Quarter: 2023Q1

REPORT INFORMATION
  Report Type: Report from Study
  Country: CO (occurrence: CO)
  Receive Date: 20211108
  Receipt Date: 20230124
  Transmission Date: 20230417
  Serious: Yes (Hospitalization, Other)
  Sender: FDA-Public Use
  Company Number: CO-ABBVIE-21K-036-4152359-00

PATIENT
  Age: 42 Year
  Sex: Male
  Weight: 58 kg

DRUGS (2)
  1. HUMIRA [Suspect]
     Active Substance: ADALIMUMAB
     Indication: Crohn^s disease
     Route: 058
     Dates: start: 20131025
  2. HUMIRA [Suspect]
     Active Substance: ADALIMUMAB

REACTIONS (13)
  - Anaemia [Recovering/Resolving]
  - Intestinal haemorrhage [Recovered/Resolved]
  - Faecal calprotectin increased [Not Recovered/Not Resolved]
  - Serum ferritin decreased [Not Recovered/Not Resolved]
  - Haemoglobin decreased [Not Recovered/Not Resolved]
  - Crohn^s disease [Not Recovered/Not Resolved]
  - Influenza [Recovered/Resolved]
  - Migraine [Recovering/Resolving]
  - Anastomotic ulcer haemorrhage [Not Recovered/Not Resolved]
  - Iron deficiency anaemia [Recovering/Resolving]
  - Jejunal stenosis [Unknown]
  - Jejunal ulcer [Unknown]
  - Drug specific antibody present [Unknown]

NARRATIVE: CASE EVENT DATE: 20211027
